FAERS Safety Report 7589738-5 (Version None)
Quarter: 2011Q3

REPORT INFORMATION
  Report Type: 
  Country: None (occurrence: None)
  Receive Date: 20110705
  Receipt Date: 20110701
  Transmission Date: 20111222
  Serious: Yes (Death)
  Sender: FDA-Public Use
  Company Number: DE-B.I. PHARMACEUTICALS,INC./RIDGEFIELD-2011-DE-03859DE

PATIENT
  Sex: Male

DRUGS (1)
  1. TWYNSTA [Suspect]
     Indication: HYPERTENSION

REACTIONS (1)
  - PROSTATE CANCER [None]
